FAERS Safety Report 13202889 (Version 1)
Quarter: 2017Q1

REPORT INFORMATION
  Report Type: Spontaneous
  Country: US (occurrence: US)
  Receive Date: 20170208
  Receipt Date: 20170208
  Transmission Date: 20170428
  Serious: No
  Sender: FDA-Public Use
  Company Number: US-AMGEN-USASP2016085703

PATIENT
  Age: 49 Year
  Sex: Female

DRUGS (3)
  1. TAXOTERE [Concomitant]
     Active Substance: DOCETAXEL
     Dosage: UNK
  2. NEULASTA [Suspect]
     Active Substance: PEGFILGRASTIM
     Indication: PRODUCT USED FOR UNKNOWN INDICATION
     Dosage: UNK, UNK
     Route: 065
  3. CYTOXAN [Concomitant]
     Active Substance: CYCLOPHOSPHAMIDE
     Dosage: UNK

REACTIONS (7)
  - Neck pain [Unknown]
  - Pyrexia [Unknown]
  - Groin pain [Unknown]
  - Lymphadenopathy [Unknown]
  - Headache [Unknown]
  - Malaise [Unknown]
  - Bone pain [Unknown]

NARRATIVE: CASE EVENT DATE: 201606
